FAERS Safety Report 4906898-2 (Version None)
Quarter: 2006Q1

REPORT INFORMATION
  Report Type: 
  Country: None (occurrence: None)
  Receive Date: 20060207
  Receipt Date: 20060130
  Transmission Date: 20060701
  Serious: Yes (Other)
  Sender: FDA-Public Use
  Company Number: 2005RL000194

PATIENT
  Age: 53 Year
  Sex: Male

DRUGS (5)
  1. OMACOR [Suspect]
     Indication: HYPERTRIGLYCERIDAEMIA
     Dosage: SEE IMAGE
     Route: 048
     Dates: start: 20051024, end: 20051129
  2. OMACOR [Suspect]
     Indication: HYPERTRIGLYCERIDAEMIA
     Dosage: SEE IMAGE
     Route: 048
     Dates: start: 20050101
  3. OLMETEC [Concomitant]
  4. PANTOZOL [Concomitant]
  5. ASPIRIN [Concomitant]

REACTIONS (1)
  - RHABDOMYOLYSIS [None]
